FAERS Safety Report 13748823 (Version 2)
Quarter: 2017Q3

REPORT INFORMATION
  Report Type: Report from Study
  Country: FR (occurrence: FR)
  Receive Date: 20170713
  Receipt Date: 20170816
  Transmission Date: 20171127
  Serious: Yes (Death, Hospitalization)
  Sender: FDA-Public Use
  Company Number: FR-ROCHE-1960436

PATIENT
  Age: 62 Year
  Sex: Male
  Weight: 63 kg

DRUGS (22)
  1. ACTISKENAN [Concomitant]
     Active Substance: MORPHINE SULFATE
     Indication: NECK PAIN
     Route: 065
     Dates: start: 201701
  2. KESTIN [Concomitant]
     Active Substance: EBASTINE
     Indication: CHRONIC OBSTRUCTIVE PULMONARY DISEASE
  3. ALLERGODYL [Concomitant]
     Indication: RHINITIS
  4. ATEZOLIZUMAB. [Suspect]
     Active Substance: ATEZOLIZUMAB
     Indication: NON-SMALL CELL LUNG CANCER STAGE IV
     Dosage: THE MOST RECENT DOSE OF ATEZOLIZUMAB (1200MG) WAS ADMINISTERED ON 30/MAY/2017
     Route: 042
     Dates: start: 20170214
  5. CISPLATIN. [Suspect]
     Active Substance: CISPLATIN
     Indication: NON-SMALL CELL LUNG CANCER STAGE IV
     Dosage: THE MOST RECENT DOSE OF CISPLATIN (DOSE 109 MG) WAS ADMINISTERED ON 02/MAY/2017
     Route: 042
     Dates: start: 20170214
  6. PRAZEPAM [Concomitant]
     Active Substance: PRAZEPAM
     Indication: DEPRESSION
     Route: 065
     Dates: start: 2012
  7. FOLIC ACID. [Concomitant]
     Active Substance: FOLIC ACID
     Indication: PREMEDICATION
     Dosage: PREMEDICATION FOR CHEMOTHERAPY
     Route: 065
     Dates: start: 201701
  8. FUNGIZONE [Concomitant]
     Active Substance: AMPHOTERICIN B
     Indication: PROPHYLAXIS
  9. TRAMADOL. [Concomitant]
     Active Substance: TRAMADOL
     Indication: NECK PAIN
     Route: 065
     Dates: start: 201701
  10. TIORFAN [Concomitant]
     Active Substance: RACECADOTRIL
     Indication: DIARRHOEA
     Route: 065
     Dates: start: 20170327
  11. SPASFON (FRANCE) [Concomitant]
     Active Substance: PHLOROGLUCINOL\1,3,5-TRIMETHOXYBENZENE
     Indication: DIARRHOEA
     Route: 065
     Dates: start: 20170327
  12. TRIFLUCAN [Concomitant]
     Active Substance: FLUCONAZOLE
     Indication: STOMATITIS
  13. PEMETREXED. [Suspect]
     Active Substance: PEMETREXED
     Indication: NON-SMALL CELL LUNG CANCER STAGE IV
     Dosage: THE MOST RECENT DOSE OF PEMETREXED (DOSE 975 MG) WAS ADMINISTERED ON 30/MAY/2017
     Route: 042
     Dates: start: 20170214
  14. PARACETAMOL [Concomitant]
     Active Substance: ACETAMINOPHEN
     Indication: NECK PAIN
  15. SMECTA [Concomitant]
     Active Substance: MONTMORILLONITE
     Indication: DIARRHOEA
     Route: 065
     Dates: start: 20170327
  16. DUPHALAC (FRANCE) [Concomitant]
     Active Substance: LACTULOSE
     Indication: CONSTIPATION
  17. TRETINOIN. [Concomitant]
     Active Substance: TRETINOIN
     Indication: ACNE
  18. EFFIZINC [Concomitant]
     Active Substance: ZINC GLUCONATE
     Indication: ACNE
  19. PRIMPERAN [Concomitant]
     Active Substance: METOCLOPRAMIDE HYDROCHLORIDE
     Indication: NAUSEA
     Route: 065
     Dates: start: 20170213
  20. XEROQUEL [Concomitant]
     Active Substance: QUETIAPINE FUMARATE
     Indication: DEPRESSION
  21. NORSET [Concomitant]
     Active Substance: MIRTAZAPINE
     Indication: DEPRESSION
     Route: 065
     Dates: start: 2012
  22. BICARBONATE [Concomitant]
     Active Substance: BICARBONATE ION
     Indication: PROPHYLAXIS

REACTIONS (1)
  - General physical health deterioration [Fatal]

NARRATIVE: CASE EVENT DATE: 20170705
